FAERS Safety Report 4901317-4 (Version None)
Quarter: 2006Q1

REPORT INFORMATION
  Report Type: 
  Country: None (occurrence: None)
  Receive Date: 20060202
  Receipt Date: 20060126
  Transmission Date: 20060701
  Serious: Yes (Other)
  Sender: FDA-Public Use
  Company Number: 2006-00326

PATIENT
  Age: 19 Year
  Sex: Female

DRUGS (1)
  1. DOXYCYCLINE HYCLATE [Suspect]
     Indication: ACNE
     Dosage: 100 MG, BID, ORAL
     Route: 048
     Dates: start: 20060112, end: 20060118

REACTIONS (1)
  - CONVULSION [None]
